FAERS Safety Report 25456235 (Version 1)
Quarter: 2025Q2

REPORT INFORMATION
  Report Type: Spontaneous
  Country: TR (occurrence: TR)
  Receive Date: 20250619
  Receipt Date: 20250619
  Transmission Date: 20250717
  Serious: Yes (Life-Threatening, Hospitalization)
  Sender: AMERICAN REGENT
  Company Number: TR-AMERICAN REGENT INC-2025002429

PATIENT
  Age: 4 Year
  Sex: Female
  Weight: 95 kg

DRUGS (3)
  1. FERINJECT [Suspect]
     Active Substance: FERRIC CARBOXYMALTOSE
     Indication: Iron deficiency
     Route: 042
     Dates: start: 20250416, end: 20250416
  2. PHENIRAMINE [Concomitant]
     Active Substance: PHENIRAMINE
     Indication: Product used for unknown indication
     Route: 065
     Dates: start: 20250416, end: 20250416
  3. METHYLPREDNISOLONE [Concomitant]
     Active Substance: METHYLPREDNISOLONE
     Indication: Product used for unknown indication
     Route: 065
     Dates: start: 20250416, end: 20250416

REACTIONS (3)
  - Bronchospasm [Recovered/Resolved]
  - Stridor [Recovered/Resolved]
  - Hypotension [Recovered/Resolved]

NARRATIVE: CASE EVENT DATE: 20250416
